FAERS Safety Report 13297556 (Version 1)
Quarter: 2017Q1

REPORT INFORMATION
  Report Type: Report from Study
  Country: US (occurrence: US)
  Receive Date: 20170306
  Receipt Date: 20170306
  Transmission Date: 20170428
  Serious: Yes (Hospitalization)
  Sender: FDA-Public Use
  Company Number: US-BAYER-2016-244301

PATIENT
  Age: 54 Year
  Sex: Male

DRUGS (3)
  1. STIVARGA [Suspect]
     Active Substance: REGORAFENIB
     Indication: COLORECTAL CANCER
     Dosage: 120 MG, QD
     Route: 048
     Dates: start: 20161218, end: 201612
  2. STIVARGA [Suspect]
     Active Substance: REGORAFENIB
     Indication: COLORECTAL CANCER
     Dosage: 80 MG, QD
     Route: 048
     Dates: start: 2017
  3. STIVARGA [Suspect]
     Active Substance: REGORAFENIB
     Indication: COLORECTAL CANCER
     Dosage: 80 MG, QD
     Route: 048
     Dates: start: 201612, end: 201701

REACTIONS (7)
  - Fatigue [Not Recovered/Not Resolved]
  - Urinary tract infection [None]
  - Fatigue [None]
  - Dry skin [None]
  - Nausea [None]
  - Haemoptysis [None]
  - Skin fissures [None]

NARRATIVE: CASE EVENT DATE: 201612
